FAERS Safety Report 19508686 (Version 1)
Quarter: 2021Q3

REPORT INFORMATION
  Report Type: Spontaneous
  Country: GB (occurrence: GB)
  Receive Date: 20210708
  Receipt Date: 20210708
  Transmission Date: 20211014
  Serious: Yes (Disabling)
  Sender: FDA-Public Use
  Company Number: GB-PFIZER INC-2021776277

PATIENT
  Age: 80 Year
  Sex: Male
  Weight: 70.3 kg

DRUGS (4)
  1. HYPOVASE [Suspect]
     Active Substance: PRAZOSIN HYDROCHLORIDE
     Indication: HYPOTENSION
     Dosage: 0.5MG
     Route: 048
     Dates: start: 20210617, end: 20210619
  2. BECLOMETASONE [Concomitant]
     Active Substance: BECLOMETHASONE DIPROPIONATE
     Route: 055
  3. CETIRIZINE [Concomitant]
     Active Substance: CETIRIZINE HYDROCHLORIDE
  4. COCODAMOL [Concomitant]
     Active Substance: ACETAMINOPHEN\CODEINE PHOSPHATE

REACTIONS (12)
  - Dizziness [Recovered/Resolved with Sequelae]
  - Asthma [Unknown]
  - Illness [Unknown]
  - Ocular discomfort [Recovered/Resolved with Sequelae]
  - Eye pain [Recovered/Resolved with Sequelae]
  - Metamorphopsia [Recovered/Resolved with Sequelae]
  - Balance disorder [Recovered/Resolved with Sequelae]
  - Feeling abnormal [Unknown]
  - Blood pressure increased [Unknown]
  - Headache [Recovered/Resolved with Sequelae]
  - Nausea [Recovered/Resolved with Sequelae]
  - Vomiting [Recovered/Resolved with Sequelae]

NARRATIVE: CASE EVENT DATE: 202106
